FAERS Safety Report 4563711-3 (Version None)
Quarter: 2005Q1

REPORT INFORMATION
  Report Type: 
  Country: None (occurrence: None)
  Receive Date: 20050121
  Receipt Date: 20050110
  Transmission Date: 20050727
  Serious: Yes (Hospitalization, Other)
  Sender: FDA-Public Use
  Company Number: 2005010692

PATIENT
  Age: 80 Year
  Sex: Female
  Weight: 73.9363 kg

DRUGS (7)
  1. LIPITOR [Suspect]
     Indication: BLOOD CHOLESTEROL INCREASED
     Dosage: 10 MG (10 MG, 1 IN 1 D), ORAL
     Route: 048
  2. NORVASC [Suspect]
     Indication: HYPERTENSION
     Dosage: 5 MG (5 MG, 1 IN 1 D), ORAL
     Route: 048
  3. CELEBREX [Suspect]
     Indication: ARTHRITIS
  4. BEXTRA [Suspect]
     Indication: ARTHRITIS
     Dates: end: 20041101
  5. BEXTRA [Suspect]
     Indication: SPINAL COLUMN STENOSIS
     Dates: end: 20041101
  6. TENORETIC (ATENOLOL) [Concomitant]
  7. LEVOTHYROXINE SODIUM [Concomitant]

REACTIONS (4)
  - ARTHRITIS [None]
  - DRUG EFFECT DECREASED [None]
  - HYPERTENSION [None]
  - SPINAL COLUMN STENOSIS [None]
